FAERS Safety Report 7003846-9 (Version None)
Quarter: 2010Q3

REPORT INFORMATION
  Report Type: 
  Country: None (occurrence: None)
  Receive Date: 20100920
  Receipt Date: 20091210
  Transmission Date: 20110219
  Serious: No
  Sender: FDA-Public Use
  Company Number: US-WYE-H12605109

PATIENT
  Sex: Female
  Weight: 84.9 kg

DRUGS (3)
  1. PRISTIQ [Suspect]
     Indication: DEPRESSION
     Route: 048
     Dates: start: 20090701
  2. TRIAMTERENE [Concomitant]
  3. ATENOLOL [Concomitant]

REACTIONS (5)
  - CONDITION AGGRAVATED [None]
  - CONTUSION [None]
  - HEADACHE [None]
  - HYPERTENSION [None]
  - IMPAIRED HEALING [None]
